FAERS Safety Report 16113247 (Version 1)
Quarter: 2019Q1

REPORT INFORMATION
  Report Type: Spontaneous
  Country: FR (occurrence: FR)
  Receive Date: 20190325
  Receipt Date: 20190325
  Transmission Date: 20190418
  Serious: Yes (Hospitalization, Other)
  Sender: FDA-Public Use
  Company Number: FR-PFIZER INC-2019123539

PATIENT
  Age: 68 Year
  Sex: Male
  Weight: 69.3 kg

DRUGS (2)
  1. MORPHINE [Suspect]
     Active Substance: MORPHINE
     Indication: PREMEDICATION
     Dosage: 10 MG, DAILY
     Route: 048
     Dates: start: 20190115, end: 20190115
  2. ALPRAZOLAM. [Suspect]
     Active Substance: ALPRAZOLAM
     Indication: PREMEDICATION
     Dosage: 0.5 MG, DAILY
     Route: 048
     Dates: start: 20190115, end: 20190115

REACTIONS (2)
  - Respiratory depression [Recovered/Resolved]
  - Hypotension [Recovered/Resolved]

NARRATIVE: CASE EVENT DATE: 20190115
